FAERS Safety Report 12546442 (Version 2)
Quarter: 2016Q3

REPORT INFORMATION
  Report Type: Spontaneous
  Country: US (occurrence: US)
  Receive Date: 20160711
  Receipt Date: 20160929
  Transmission Date: 20161109
  Serious: No
  Sender: FDA-Public Use
  Company Number: US-EMERGENT BIOSOLUTIONS-16BA00098SP

PATIENT
  Age: 70 Year
  Sex: Male
  Weight: 72 kg

DRUGS (8)
  1. PHOS-NAK [Concomitant]
     Active Substance: POTASSIUM PHOSPHATE, MONOBASIC\SODIUM PHOSPHATE, DIBASIC, ANHYDROUS\SODIUM PHOSPHATE, MONOBASIC, MONOHYDRATE
     Indication: HYPOPHOSPHATAEMIA
     Dosage: 250 MG, SINGLE
     Dates: start: 20160623, end: 20160623
  2. ENOXAPARIN SODIUM. [Concomitant]
     Active Substance: ENOXAPARIN SODIUM
     Indication: THROMBOSIS PROPHYLAXIS
     Dosage: 40 MG, QD
     Route: 058
     Dates: start: 20160623
  3. INSULIN GLARGINE [Concomitant]
     Active Substance: INSULIN GLARGINE
     Indication: HYPERGLYCAEMIA
     Dosage: 5 U, QD
     Route: 058
     Dates: start: 20160623
  4. ATORVASTATIN [Concomitant]
     Active Substance: ATORVASTATIN
     Indication: HYPERLIPIDAEMIA
     Dosage: 80 MG, QD
     Dates: start: 20160623
  5. INSULIN ASPART [Concomitant]
     Active Substance: INSULIN ASPART
     Indication: HYPERGLYCAEMIA
     Dosage: 17 U, Q4HR
     Route: 058
     Dates: start: 20160623
  6. BAT [Suspect]
     Active Substance: EQUINE BOTULINUM NEUROTOXIN A/B/C/D/E/F/G IMMUNE FAB2
     Indication: BOTULISM
     Dosage: 180 UNIT, SINGLE
     Route: 041
     Dates: start: 20160623, end: 20160623
  7. THIAMINE HCL [Concomitant]
     Indication: ENCEPHALOPATHY
     Dosage: 500 MG, Q8H
     Dates: start: 20160623
  8. DOCUSATE CALCIUM. [Concomitant]
     Active Substance: DOCUSATE CALCIUM
     Indication: CONSTIPATION PROPHYLAXIS
     Dosage: 250 MG, BID
     Dates: start: 20160623

REACTIONS (3)
  - Pneumonia [Unknown]
  - Bradycardia [Recovered/Resolved]
  - Blood pressure decreased [Recovering/Resolving]

NARRATIVE: CASE EVENT DATE: 2016
